FAERS Safety Report 6171955-2 (Version None)
Quarter: 2009Q2

REPORT INFORMATION
  Report Type: 
  Country: None (occurrence: None)
  Receive Date: 20090429
  Receipt Date: 20090420
  Transmission Date: 20091009
  Serious: Yes (Hospitalization)
  Sender: FDA-Public Use
  Company Number: PHHY2009IE12736

PATIENT
  Sex: Male

DRUGS (1)
  1. CLOZARIL [Suspect]
     Indication: SCHIZOPHRENIA
     Dosage: 400 MG, UNK
     Route: 048
     Dates: start: 20020325

REACTIONS (5)
  - BLINDNESS UNILATERAL [None]
  - CELLULITIS ORBITAL [None]
  - DIABETES MELLITUS [None]
  - MENINGITIS [None]
  - SEPSIS [None]
